FAERS Safety Report 4963926-6 (Version None)
Quarter: 2006Q1

REPORT INFORMATION
  Report Type: 
  Country: None (occurrence: None)
  Receive Date: 20060330
  Receipt Date: 20060321
  Transmission Date: 20060701
  Serious: Yes (Other)
  Sender: FDA-Public Use
  Company Number: 2006040847

PATIENT
  Age: 75 Year
  Sex: Male
  Weight: 74.8435 kg

DRUGS (7)
  1. TIKOSYN [Suspect]
     Indication: ATRIAL FIBRILLATION
     Dosage: 1 MG (500 MCG, 2 IN 1 D), ORAL
     Route: 048
     Dates: start: 20030821
  2. COUMADIN [Suspect]
     Indication: ANTICOAGULANT THERAPY
     Dates: end: 20030909
  3. PHENYTOIN SODIUM CAP [Concomitant]
  4. LEVOTHYROXINE SODIUM [Concomitant]
  5. ATENOLOL [Concomitant]
  6. DIGOXIN [Concomitant]
  7. ASPIRIN [Concomitant]

REACTIONS (7)
  - BLOOD CHOLESTEROL INCREASED [None]
  - COUGH [None]
  - DYSPNOEA [None]
  - HAEMORRHAGE [None]
  - LARGE INTESTINE PERFORATION [None]
  - PITUITARY TUMOUR [None]
  - REFUSAL OF TREATMENT BY PATIENT [None]
